FAERS Safety Report 17974182 (Version 3)
Quarter: 2020Q4

REPORT INFORMATION
  Report Type: Report from Study
  Country: US (occurrence: US)
  Receive Date: 20200702
  Receipt Date: 20201208
  Transmission Date: 20210113
  Serious: No
  Sender: FDA-Public Use
  Company Number: NVSC2020US184024

PATIENT
  Sex: Female

DRUGS (1)
  1. GILENYA [Suspect]
     Active Substance: FINGOLIMOD HYDROCHLORIDE
     Indication: MULTIPLE SCLEROSIS
     Dosage: 0.5 MG, QD
     Route: 048
     Dates: start: 20200626

REACTIONS (7)
  - Tremor [Not Recovered/Not Resolved]
  - Epistaxis [Unknown]
  - Somnolence [Recovered/Resolved]
  - Chills [Unknown]
  - Heart rate decreased [Recovered/Resolved]
  - Pyrexia [Recovered/Resolved]
  - Acne [Unknown]
